FAERS Safety Report 9151819 (Version 1)
Quarter: 2013Q1

REPORT INFORMATION
  Report Type: Spontaneous
  Country: ZA (occurrence: ZA)
  Receive Date: 20130308
  Receipt Date: 20130308
  Transmission Date: 20140127
  Serious: Yes (Other)
  Sender: FDA-Public Use
  Company Number: ZA-ABBOTT-13P-143-1060905-00

PATIENT
  Sex: 0

DRUGS (4)
  1. SODIUM VALPROATE [Suspect]
     Indication: CONVULSION
  2. KALETRA [Interacting]
     Indication: HIV INFECTION
  3. AZT [Interacting]
     Indication: HIV INFECTION
  4. DIDANOSINE [Interacting]
     Indication: HIV INFECTION

REACTIONS (3)
  - Convulsion [Unknown]
  - Drug interaction [Unknown]
  - Anticonvulsant drug level below therapeutic [Unknown]
